FAERS Safety Report 24783740 (Version 4)
Quarter: 2025Q2

REPORT INFORMATION
  Report Type: Spontaneous
  Country: US (occurrence: US)
  Receive Date: 20241227
  Receipt Date: 20250502
  Transmission Date: 20250716
  Serious: No
  Sender: LUPIN
  Company Number: US-LUPIN PHARMACEUTICALS INC.-2024-12432

PATIENT
  Age: 77 Year
  Weight: 78.005 kg

DRUGS (4)
  1. MAGNESIUM SULFATE\POTASSIUM SULFATE\SODIUM SULFATE [Suspect]
     Active Substance: MAGNESIUM SULFATE\POTASSIUM SULFATE\SODIUM SULFATE
     Indication: Constipation
  2. MAGNESIUM SULFATE\POTASSIUM SULFATE\SODIUM SULFATE [Suspect]
     Active Substance: MAGNESIUM SULFATE\POTASSIUM SULFATE\SODIUM SULFATE
  3. MAGNESIUM SULFATE\POTASSIUM SULFATE\SODIUM SULFATE [Suspect]
     Active Substance: MAGNESIUM SULFATE\POTASSIUM SULFATE\SODIUM SULFATE
  4. MAGNESIUM SULFATE\POTASSIUM SULFATE\SODIUM SULFATE [Suspect]
     Active Substance: MAGNESIUM SULFATE\POTASSIUM SULFATE\SODIUM SULFATE

REACTIONS (5)
  - Product prescribing issue [Unknown]
  - Product dispensing error [Unknown]
  - Product dose omission issue [Unknown]
  - Product packaging quantity issue [Unknown]
  - No adverse event [Unknown]
